FAERS Safety Report 20419545 (Version 1)
Quarter: 2022Q1

REPORT INFORMATION
  Report Type: Spontaneous
  Country: CN (occurrence: CN)
  Receive Date: 20220203
  Receipt Date: 20220203
  Transmission Date: 20220423
  Serious: Yes (Other)
  Sender: FDA-Public Use
  Company Number: CN-ABBVIE-22K-035-4262543-00

PATIENT
  Age: 42 Year
  Sex: Male
  Weight: 65 kg

DRUGS (2)
  1. VALPROATE SODIUM [Suspect]
     Active Substance: VALPROATE SODIUM
     Indication: Epilepsy
     Route: 048
     Dates: start: 2014, end: 2017
  2. VALPROATE SODIUM [Suspect]
     Active Substance: VALPROATE SODIUM
     Route: 048
     Dates: start: 2017

REACTIONS (8)
  - Cerebral atrophy [Not Recovered/Not Resolved]
  - Epilepsy [Recovered/Resolved]
  - Coma [Recovered/Resolved]
  - Musculoskeletal stiffness [Recovered/Resolved]
  - Foaming at mouth [Recovered/Resolved]
  - Vomiting [Recovered/Resolved]
  - Decreased appetite [Recovered/Resolved]
  - Rash [Not Recovered/Not Resolved]
